FAERS Safety Report 4759214-3 (Version None)
Quarter: 2005Q3

REPORT INFORMATION
  Report Type: 
  Country: None (occurrence: None)
  Receive Date: 20050831
  Receipt Date: 20050808
  Transmission Date: 20060218
  Serious: Yes (Other)
  Sender: FDA-Public Use
  Company Number: 6016542F

PATIENT
  Sex: Male

DRUGS (5)
  1. NIASPAN [Suspect]
     Dosage: 375 MG QD PO
     Route: 048
     Dates: start: 20050729
  2. ATENOLOL [Concomitant]
  3. EZETIMIBE [Concomitant]
  4. BENDROFLUMETHIAZIDE [Concomitant]
  5. ESPROSARTAN [Concomitant]

REACTIONS (4)
  - ACCOMMODATION DISORDER [None]
  - DISORIENTATION [None]
  - FLUSHING [None]
  - VISUAL DISTURBANCE [None]
